FAERS Safety Report 8089976-1 (Version None)
Quarter: 2012Q1

REPORT INFORMATION
  Report Type: 
  Country: None (occurrence: None)
  Receive Date: 20120129
  Receipt Date: 20110923
  Transmission Date: 20120608
  Serious: No
  Sender: FDA-Public Use
  Company Number: US-ABBOTT-11P-163-0857410-00

PATIENT
  Age: 61 Year
  Sex: Female

DRUGS (9)
  1. ZYMAR [Concomitant]
     Indication: PRODUCT USED FOR UNKNOWN INDICATION
  2. HUMIRA [Suspect]
     Indication: ANKYLOSING SPONDYLITIS
     Dates: start: 20110801
  3. FLAXSEED OIL [Concomitant]
     Indication: SUPPLEMENTATION THERAPY
  4. DUREZOL [Concomitant]
     Indication: STEROID THERAPY
     Dosage: 4 DROPS DAILY
  5. DEXILANT [Concomitant]
     Indication: OROPHARYNGEAL PAIN
     Dosage: DAILY
  6. HYDROCHLOROTHIAZIDE [Concomitant]
     Indication: HYPERTENSION
     Dosage: 25MG DAILY
  7. DOXYCYCLINE [Concomitant]
     Indication: UVEITIS
  8. CELEBREX [Concomitant]
     Indication: ANKYLOSING SPONDYLITIS
     Dosage: DAILY
  9. XALATAN [Concomitant]
     Indication: GLAUCOMA
     Dosage: EYE DROPS

REACTIONS (4)
  - INJECTION SITE PAIN [None]
  - INJECTION SITE HAEMORRHAGE [None]
  - NEEDLE ISSUE [None]
  - DEVICE MALFUNCTION [None]
